FAERS Safety Report 4730854-0 (Version None)
Quarter: 2005Q3

REPORT INFORMATION
  Report Type: 
  Country: None (occurrence: None)
  Receive Date: 20050719
  Receipt Date: 20040616
  Transmission Date: 20060218
  Serious: Yes (Other)
  Sender: FDA-Public Use
  Company Number: 194670

PATIENT
  Age: 43 Year
  Sex: Female
  Weight: 96.1626 kg

DRUGS (1)
  1. AVONEX [Suspect]
     Indication: MULTIPLE SCLEROSIS
     Dosage: 30 UG;QW;IM
     Route: 030
     Dates: start: 20040311

REACTIONS (5)
  - ANAPHYLACTIC REACTION [None]
  - DYSGEUSIA [None]
  - GINGIVAL PAIN [None]
  - MIGRAINE [None]
  - PRURITUS GENERALISED [None]
